FAERS Safety Report 4751167-7 (Version None)
Quarter: 2005Q3

REPORT INFORMATION
  Report Type: 
  Country: None (occurrence: None)
  Receive Date: 20050822
  Receipt Date: 20050811
  Transmission Date: 20060218
  Serious: Yes (Other)
  Sender: FDA-Public Use
  Company Number: 2005113167

PATIENT
  Age: 1 Month
  Sex: Male

DRUGS (1)
  1. CETIRIZINE HCL [Suspect]
     Indication: ILL-DEFINED DISORDER
     Dosage: 10 MG (1 IN 1 D) , TRANSMAMMARY
     Route: 063
     Dates: start: 20050708, end: 20050721

REACTIONS (2)
  - DRUG EXPOSURE VIA BREAST MILK [None]
  - FAECES DISCOLOURED [None]
